FAERS Safety Report 25540655 (Version 4)
Quarter: 2025Q4

REPORT INFORMATION
  Report Type: Other
  Country: US (occurrence: US)
  Receive Date: 20250710
  Receipt Date: 20251009
  Transmission Date: 20260117
  Serious: Yes (Hospitalization)
  Sender: TRAVERE THERAPEUTICS
  Company Number: US-TRAVERE-2025TVT01042

PATIENT
  Age: 40 Year
  Sex: Female
  Weight: 49 kg

DRUGS (28)
  1. FILSPARI [Suspect]
     Active Substance: SPARSENTAN
     Indication: IgA nephropathy
     Route: 048
     Dates: start: 20240621, end: 20250829
  2. FILSPARI [Suspect]
     Active Substance: SPARSENTAN
     Route: 048
     Dates: start: 20250902
  3. ELIQUIS [Concomitant]
     Active Substance: APIXABAN
  4. SENSIPAR [Concomitant]
     Active Substance: CINACALCET HYDROCHLORIDE
  5. CYMBALTA [Concomitant]
     Active Substance: DULOXETINE HYDROCHLORIDE
  6. VITAMIN D2 [Concomitant]
     Active Substance: ERGOCALCIFEROL
  7. PROZAC [Concomitant]
     Active Substance: FLUOXETINE HYDROCHLORIDE
  8. KEPPRA [Concomitant]
     Active Substance: LEVETIRACETAM
  9. SYNTHROID [Concomitant]
     Active Substance: LEVOTHYROXINE SODIUM
  10. Zofran-ODT [Concomitant]
  11. DELTASONE [Concomitant]
     Active Substance: PREDNISONE
  12. MYFORTIC [Concomitant]
     Active Substance: MYCOPHENOLATE SODIUM
  13. PHOSPHA 250 NEUTRAL [Concomitant]
     Active Substance: POTASSIUM PHOSPHATE, MONOBASIC\SODIUM PHOSPHATE, DIBASIC, ANHYDROUS\SODIUM PHOSPHATE, MONOBASIC, MON
  14. SODIUM BICARBONATE [Concomitant]
     Active Substance: SODIUM BICARBONATE
  15. CARAFATE [Concomitant]
     Active Substance: SUCRALFATE
  16. PROGRAF [Concomitant]
     Active Substance: TACROLIMUS
  17. ERGOCALCIFEROL [Concomitant]
     Active Substance: ERGOCALCIFEROL
  18. LOVENOX [Concomitant]
     Active Substance: ENOXAPARIN SODIUM
  19. TYLENOL [Concomitant]
     Active Substance: ACETAMINOPHEN
  20. TESSALON [Concomitant]
     Active Substance: BENZONATATE
  21. ZYRTEC [Concomitant]
     Active Substance: CETIRIZINE HYDROCHLORIDE
  22. FLUCELVAX NOS [Concomitant]
     Active Substance: INFLUENZA A VIRUS A/BRISBANE/10/2010 (H1N1) ANTIGEN (MDCK CELL DERIVED, PROPIOLACTONE INACTIVATED)\I
  23. APRESOLINE HYDROCHLORIDE [Concomitant]
     Active Substance: HYDRALAZINE HYDROCHLORIDE
  24. ROBAXIN [Concomitant]
     Active Substance: METHOCARBAMOL
  25. MIRALAX [Concomitant]
     Active Substance: POLYETHYLENE GLYCOL 3350
  26. ROZEREM [Concomitant]
     Active Substance: RAMELTEON
  27. SENOKOT-S [Concomitant]
     Active Substance: DOCUSATE SODIUM\SENNOSIDES
  28. SIMETHICONE (DIMETHICONE) [Concomitant]
     Active Substance: DIMETHICONE

REACTIONS (11)
  - Paraesthesia [Recovering/Resolving]
  - Thrombosis [Unknown]
  - Hypoaesthesia [Unknown]
  - Asthenia [Recovering/Resolving]
  - Dysuria [Unknown]
  - Vision blurred [Recovering/Resolving]
  - Pain in extremity [None]
  - Fatigue [None]
  - Blood pressure fluctuation [None]
  - Somnolence [Recovering/Resolving]
  - Breast tenderness [Recovering/Resolving]
